FAERS Safety Report 10191313 (Version 2)
Quarter: 2014Q2

REPORT INFORMATION
  Report Type: Spontaneous
  Country: DE (occurrence: None)
  Receive Date: 20140521
  Receipt Date: 20140528
  Transmission Date: 20141212
  Serious: Yes (Congenital Anomaly, Other)
  Sender: FDA-Public Use
  Company Number: AUR-APL-2014-05843

PATIENT
  Sex: 0

DRUGS (1)
  1. TERBINAFINE (TERBINAFINE) [Suspect]
     Indication: ONYCHOMYCOSIS
     Dosage: 250 MG (250 MG, 1 IN 1 D)
     Route: 064
     Dates: start: 20130328, end: 20130505

REACTIONS (5)
  - Maternal drugs affecting foetus [None]
  - Foetal exposure during pregnancy [None]
  - Anencephaly [None]
  - Congenital anomaly [None]
  - Abortion induced [None]
